FAERS Safety Report 10368186 (Version 2)
Quarter: 2014Q3

REPORT INFORMATION
  Report Type: Spontaneous
  Country: DE (occurrence: DE)
  Receive Date: 20140807
  Receipt Date: 20140807
  Transmission Date: 20150326
  Serious: Yes (Hospitalization)
  Sender: FDA-Public Use
  Company Number: DE-SA-2014SA097248

PATIENT
  Sex: Female

DRUGS (5)
  1. ASPIRIN. [Concomitant]
     Active Substance: ASPIRIN
     Indication: HEADACHE
  2. ACICLOVIR [Concomitant]
     Active Substance: ACYCLOVIR
     Indication: HERPES ZOSTER
  3. YAZ [Concomitant]
     Active Substance: DROSPIRENONE\ETHINYL ESTRADIOL
     Dosage: DOSE: 0.02/0.3 /MG /
  4. CORTISONE [Concomitant]
     Active Substance: CORTISONE\HYDROCORTISONE
     Dosage: 4 X 1 G
     Dates: start: 201401
  5. AUBAGIO [Suspect]
     Active Substance: TERIFLUNOMIDE
     Indication: MULTIPLE SCLEROSIS
     Route: 048
     Dates: end: 201407

REACTIONS (13)
  - Cough [Unknown]
  - Diarrhoea [Unknown]
  - Rhinitis [Unknown]
  - Obstructive airways disorder [Unknown]
  - Alopecia [Unknown]
  - Paraesthesia [Unknown]
  - Conjunctivitis [Unknown]
  - Eosinophilia [Unknown]
  - Fatigue [Unknown]
  - General physical health deterioration [Unknown]
  - Eosinophilic colitis [Unknown]
  - Enteritis [Unknown]
  - Allergic granulomatous angiitis [Unknown]

NARRATIVE: CASE EVENT DATE: 201406
